FAERS Safety Report 6560932-5 (Version None)
Quarter: 2010Q1

REPORT INFORMATION
  Report Type: 
  Country: None (occurrence: None)
  Receive Date: 20100129
  Receipt Date: 20090930
  Transmission Date: 20100710
  Serious: No
  Sender: FDA-Public Use
  Company Number: US-ABBOTT-09P-163-0600379-00

PATIENT
  Sex: Male
  Weight: 90.8 kg

DRUGS (13)
  1. HUMIRA [Suspect]
     Indication: PSORIATIC ARTHROPATHY
     Route: 058
     Dates: start: 20080501
  2. HUMIRA [Suspect]
     Indication: RHEUMATOID ARTHRITIS
  3. MOBIC [Concomitant]
     Indication: DRUG USE FOR UNKNOWN INDICATION
  4. CARIZEM CD [Concomitant]
     Indication: DRUG USE FOR UNKNOWN INDICATION
     Dosage: 240
  5. LYRICA [Concomitant]
     Indication: DRUG USE FOR UNKNOWN INDICATION
  6. JANUVIA [Concomitant]
     Indication: DRUG USE FOR UNKNOWN INDICATION
  7. GLUCOPHAGE [Concomitant]
     Indication: DRUG USE FOR UNKNOWN INDICATION
  8. FLEXERIL [Concomitant]
     Indication: DRUG USE FOR UNKNOWN INDICATION
  9. LIPITOR [Concomitant]
     Indication: DRUG USE FOR UNKNOWN INDICATION
  10. ZYRTEC [Concomitant]
     Indication: DRUG USE FOR UNKNOWN INDICATION
  11. FLONASE [Concomitant]
     Indication: DRUG USE FOR UNKNOWN INDICATION
     Dosage: PRN
  12. PLAVIX [Concomitant]
     Indication: DRUG USE FOR UNKNOWN INDICATION
  13. ELAVIL [Concomitant]
     Indication: DRUG USE FOR UNKNOWN INDICATION

REACTIONS (3)
  - BRONCHITIS [None]
  - LUNG INFECTION [None]
  - SINUSITIS [None]
